FAERS Safety Report 9541067 (Version 2)
Quarter: 2013Q3

REPORT INFORMATION
  Report Type: Report from Study
  Country: KE (occurrence: KE)
  Receive Date: 20130923
  Receipt Date: 20130923
  Transmission Date: 20140515
  Serious: Yes (Death, Hospitalization)
  Sender: FDA-Public Use
  Company Number: KE-009507513-1105USA02409

PATIENT
  Age: 38 Year
  Sex: Female

DRUGS (3)
  1. RALTEGRAVIR POTASSIUM [Suspect]
     Indication: HIV INFECTION
     Route: 048
     Dates: start: 20110317
  2. ALUVIA [Suspect]
     Dosage: UNK
     Dates: start: 20110317
  3. SULFAMETHOXAZOLE (+) TRIMETHOPRIM [Concomitant]
     Dates: start: 20030708, end: 20110604

REACTIONS (5)
  - Dehydration [Recovered/Resolved]
  - Malaise [Fatal]
  - Vomiting [Fatal]
  - Decreased appetite [Fatal]
  - Death [Fatal]
